FAERS Safety Report 7271944-0 (Version None)
Quarter: 2011Q1

REPORT INFORMATION
  Report Type: 
  Country: None (occurrence: None)
  Receive Date: 20110126
  Receipt Date: 20110112
  Transmission Date: 20110831
  Serious: Yes (Other)
  Sender: FDA-Public Use
  Company Number: 1000018243

PATIENT
  Sex: Male

DRUGS (1)
  1. ESCITALOPRAM (ESCITALOPRAM OXALATE) [Suspect]
     Indication: DEPRESSION
     Dosage: 20 MG (20 MG, 1IN 1 D), ORAL
     Route: 048
     Dates: end: 20101215

REACTIONS (2)
  - HAEMATEMESIS [None]
  - GASTROINTESTINAL HAEMORRHAGE [None]
